FAERS Safety Report 12416217 (Version 1)
Quarter: 2016Q2

REPORT INFORMATION
  Report Type: Spontaneous
  Country: FR (occurrence: FR)
  Receive Date: 20160530
  Receipt Date: 20160530
  Transmission Date: 20160815
  Serious: Yes (Hospitalization)
  Sender: FDA-Public Use
  Company Number: FR-PFIZER INC-2016269584

PATIENT
  Age: 51 Year
  Sex: Female

DRUGS (11)
  1. VANCOMYCINE [Concomitant]
     Active Substance: VANCOMYCIN
     Indication: BRAIN ABSCESS
  2. CEFTRIAXONE. [Concomitant]
     Active Substance: CEFTRIAXONE
     Indication: BRAIN ABSCESS
     Dosage: UNK
     Dates: start: 20151012
  3. ADVAGRAF [Concomitant]
     Active Substance: TACROLIMUS
  4. METRONIDAZOLE. [Concomitant]
     Active Substance: METRONIDAZOLE
     Indication: BRAIN ABSCESS
     Dosage: UNK
  5. ENOXAPARIN [Concomitant]
     Active Substance: ENOXAPARIN
     Indication: DEEP VEIN THROMBOSIS
  6. KEPPRA [Concomitant]
     Active Substance: LEVETIRACETAM
     Dosage: UNK
     Dates: start: 201510
  7. METRONIDAZOLE. [Concomitant]
     Active Substance: METRONIDAZOLE
     Dosage: UNK
     Dates: start: 20151102
  8. SOLU-MEDROL [Suspect]
     Active Substance: METHYLPREDNISOLONE SODIUM SUCCINATE
     Indication: BRAIN ABSCESS
     Dosage: UNK
     Route: 042
     Dates: start: 20151006, end: 20151008
  9. CELLCEPT [Concomitant]
     Active Substance: MYCOPHENOLATE MOFETIL\MYCOPHENOLATE MOFETIL HYDROCHLORIDE
  10. SPECIAFOLDINE [Concomitant]
     Active Substance: FOLIC ACID
  11. SOLUPRED /00016201/ [Suspect]
     Active Substance: PREDNISOLONE
     Indication: BRAIN ABSCESS
     Dosage: UNK
     Route: 048
     Dates: start: 201510, end: 20151211

REACTIONS (1)
  - Diabetes mellitus [Not Recovered/Not Resolved]

NARRATIVE: CASE EVENT DATE: 20151008
